FAERS Safety Report 9459038 (Version 1)
Quarter: 2013Q3

REPORT INFORMATION
  Report Type: Spontaneous
  Country: US (occurrence: US)
  Receive Date: 20130814
  Receipt Date: 20130814
  Transmission Date: 20140515
  Serious: No
  Sender: FDA-Public Use
  Company Number: US-B.I. PHARMACEUTICALS,INC./RIDGEFIELD-2013-BI-24102BP

PATIENT
  Age: 77 Year
  Sex: Female

DRUGS (3)
  1. COMBIVENT [Suspect]
     Indication: CHRONIC OBSTRUCTIVE PULMONARY DISEASE
     Dosage: STRENGTH: 20 MCG / 100 MCG; DAILY DOSE: 80 MCG/ 400 MCG
     Route: 055
     Dates: start: 201306
  2. ADVAIR [Concomitant]
     Route: 055
  3. COMBIVENT INHALATION AEROSOL [Concomitant]
     Route: 055
     Dates: end: 201306

REACTIONS (1)
  - Drug effect decreased [Not Recovered/Not Resolved]
